FAERS Safety Report 5392424-3 (Version None)
Quarter: 2007Q3

REPORT INFORMATION
  Report Type: 
  Country: None (occurrence: None)
  Receive Date: 20070720
  Receipt Date: 20070718
  Transmission Date: 20080115
  Serious: Yes (Other)
  Sender: FDA-Public Use
  Company Number: B0479652A

PATIENT
  Age: 39 Year
  Sex: Female

DRUGS (1)
  1. AMOXICILLIN [Suspect]
     Indication: DRUG USE FOR UNKNOWN INDICATION
     Dosage: 750MG PER DAY
     Route: 048
     Dates: start: 20070207

REACTIONS (1)
  - MELAENA [None]
